FAERS Safety Report 14751040 (Version 1)
Quarter: 2018Q2

REPORT INFORMATION
  Report Type: Spontaneous
  Country: US (occurrence: US)
  Receive Date: 20180412
  Receipt Date: 20180412
  Transmission Date: 20180711
  Serious: No
  Sender: FDA-Public Use
  Company Number: US-SCIEGEN PHARMACEUTICALS INC-2018SCISPO00186

PATIENT

DRUGS (5)
  1. CARISOPRODOL TABLETS [Suspect]
     Active Substance: CARISOPRODOL
     Dosage: 3 TIMES A DAY
     Route: 065
  2. NORCO [Concomitant]
     Active Substance: ACETAMINOPHEN\HYDROCODONE BITARTRATE
     Indication: PRODUCT USED FOR UNKNOWN INDICATION
     Dosage: UNK
     Route: 065
  3. HUMIRA [Concomitant]
     Active Substance: ADALIMUMAB
     Indication: PRODUCT USED FOR UNKNOWN INDICATION
     Dosage: UNK, 40 MG INJECTION ONCE EVERY 2 WEEK
     Route: 065
  4. CARISOPRODOL TABLETS [Suspect]
     Active Substance: CARISOPRODOL
     Indication: MUSCLE DISORDER
     Dosage: 350 MG, UNK
     Route: 065
  5. CARISOPRODOL TABLETS [Suspect]
     Active Substance: CARISOPRODOL
     Dosage: MORE DOSE
     Route: 065

REACTIONS (2)
  - Drug ineffective [Unknown]
  - Intentional product use issue [Unknown]
